FAERS Safety Report 16420998 (Version 2)
Quarter: 2021Q1

REPORT INFORMATION
  Report Type: Report from Study
  Country: CN (occurrence: CN)
  Receive Date: 20190612
  Receipt Date: 20210329
  Transmission Date: 20210419
  Serious: Yes (Death, Hospitalization)
  Sender: FDA-Public Use
  Company Number: CN-PFIZER INC-2015250116

PATIENT
  Age: 67 Year
  Sex: Female
  Weight: 46 kg

DRUGS (7)
  1. ETHACRIDINE [Concomitant]
     Active Substance: ETHACRIDINE
     Indication: GENITAL RASH
     Dosage: 6 TIMES A DAY, AS NEEDED
     Route: 061
     Dates: start: 20141230
  2. DACOMITINIB [Suspect]
     Active Substance: DACOMITINIB
     Indication: NON-SMALL CELL LUNG CANCER
     Dosage: 45 MG, UNK
     Dates: start: 20140716, end: 20150717
  3. IRBESARTAN. [Concomitant]
     Active Substance: IRBESARTAN
     Indication: HYPERTENSION
     Dosage: 1 TABLET, 1X/DAY
     Route: 048
     Dates: start: 20140730
  4. MONTMORILLONITE [Concomitant]
     Active Substance: MONTMORILLONITE
     Indication: DIARRHOEA
     Dosage: 3 G, 2X/DAY
     Route: 048
     Dates: start: 20140727, end: 20140727
  5. MONTMORILLONITE [Concomitant]
     Active Substance: MONTMORILLONITE
     Dosage: 3 G, AS NEEDED
     Route: 048
     Dates: start: 20140805
  6. HALOMETASONE [Concomitant]
     Active Substance: HALOMETASONE
     Indication: SKIN INFECTION
     Dosage: UNK, AS NEEDED
     Route: 003
     Dates: start: 20140816
  7. MUPIROCIN. [Concomitant]
     Active Substance: MUPIROCIN
     Indication: SKIN INFECTION
     Dosage: UNK, AS NEEDED
     Route: 003
     Dates: start: 20140816

REACTIONS (2)
  - Death [Fatal]
  - Drug-induced liver injury [Recovering/Resolving]

NARRATIVE: CASE EVENT DATE: 20150722
